FAERS Safety Report 17765819 (Version 1)
Quarter: 2020Q2

REPORT INFORMATION
  Report Type: Spontaneous
  Country: US (occurrence: US)
  Receive Date: 20200510
  Receipt Date: 20200510
  Transmission Date: 20200714
  Serious: Yes (Other)
  Sender: FDA-Public Use
  Company Number: None

PATIENT
  Age: 68 Year
  Sex: Female
  Weight: 72.9 kg

DRUGS (15)
  1. PRAVASTATIN. [Concomitant]
     Active Substance: PRAVASTATIN
  2. ATENOLOL. [Concomitant]
     Active Substance: ATENOLOL
  3. DULOCTENE [Concomitant]
  4. ANLODIPINE [Concomitant]
  5. CPAP [Concomitant]
     Active Substance: DEVICE
  6. FOSAMAX [Concomitant]
     Active Substance: ALENDRONATE SODIUM
  7. SELENIUM [Concomitant]
     Active Substance: SELENIUM
  8. GABAPENTIN. [Concomitant]
     Active Substance: GABAPENTIN
  9. ZINC. [Concomitant]
     Active Substance: ZINC
  10. NANO SILVER [Concomitant]
  11. VITAMIN D [Concomitant]
     Active Substance: VITAMIN D NOS
  12. HUMIRA [Suspect]
     Active Substance: ADALIMUMAB
     Indication: ANKYLOSING SPONDYLITIS
     Dosage: ?          QUANTITY:1 INJECTION(S);OTHER FREQUENCY:EVERY 14 DAYS;?
     Route: 058
     Dates: start: 20200302, end: 20200413
  13. ROPINIROLE. [Concomitant]
     Active Substance: ROPINIROLE
  14. VITAMIN C [Concomitant]
     Active Substance: ASCORBIC ACID
  15. BIOTIN [Concomitant]
     Active Substance: BIOTIN

REACTIONS (2)
  - Upper respiratory tract infection [None]
  - Sinusitis [None]

NARRATIVE: CASE EVENT DATE: 20200317
